FAERS Safety Report 5953150-2 (Version None)
Quarter: 2008Q4

REPORT INFORMATION
  Report Type: 
  Country: None (occurrence: None)
  Receive Date: 20081031
  Receipt Date: 20080529
  Transmission Date: 20090506
  Serious: Yes (Other)
  Sender: FDA-Public Use
  Company Number: US023693

PATIENT
  Age: 60 Year
  Sex: Female
  Weight: 77.1115 kg

DRUGS (7)
  1. PROVIGIL [Suspect]
     Indication: FATIGUE
     Dosage: 200 MG BID ORAL
     Route: 048
     Dates: start: 20080101, end: 20080528
  2. ABILIFY [Concomitant]
  3. CYMBALTA [Concomitant]
  4. DETROL /01350201/ [Concomitant]
  5. PRILOSEC [Concomitant]
  6. SEROQUEL [Concomitant]
  7. SINEMET [Concomitant]

REACTIONS (3)
  - HYPERSENSITIVITY [None]
  - ORAL DISORDER [None]
  - RASH ERYTHEMATOUS [None]
